FAERS Safety Report 4749607-2 (Version None)
Quarter: 2005Q3

REPORT INFORMATION
  Report Type: 
  Country: None (occurrence: None)
  Receive Date: 20050819
  Receipt Date: 20050819
  Transmission Date: 20060218
  Serious: Yes (Other)
  Sender: FDA-Public Use
  Company Number: None

PATIENT
  Sex: Female
  Weight: 63.5036 kg

DRUGS (7)
  1. AVANDIA [Suspect]
     Indication: DIABETES MELLITUS
     Dosage: 8MG   QD   PO
     Route: 048
  2. SOTALOL HCL [Concomitant]
  3. LISINOPRIL [Concomitant]
  4. FUROSEMIDE [Concomitant]
  5. PAROXETINE [Concomitant]
  6. ZETIA [Concomitant]
  7. GLIPIZIDE-ER [Concomitant]

REACTIONS (1)
  - ALOPECIA [None]
